FAERS Safety Report 7304962-4 (Version None)
Quarter: 2011Q1

REPORT INFORMATION
  Report Type: 
  Country: None (occurrence: None)
  Receive Date: 20110222
  Receipt Date: 20110210
  Transmission Date: 20110831
  Serious: Yes (Death, Hospitalization, Other)
  Sender: FDA-Public Use
  Company Number: IT-CELGENEUS-083-21880-11012134

PATIENT
  Sex: Male

DRUGS (4)
  1. TAZOCIN [Concomitant]
     Route: 065
     Dates: start: 20110112, end: 20110113
  2. DEXAMETHASONE [Concomitant]
     Indication: MULTIPLE MYELOMA
     Route: 065
     Dates: start: 20101001
  3. REVLIMID [Suspect]
     Indication: MULTIPLE MYELOMA
     Route: 048
     Dates: start: 20101008, end: 20110105
  4. URBASON [Concomitant]
     Route: 065
     Dates: start: 20110112, end: 20110113

REACTIONS (3)
  - PANCYTOPENIA [None]
  - SEPTIC SHOCK [None]
  - ERYTHEMA [None]
